FAERS Safety Report 7988435-1 (Version None)
Quarter: 2011Q4

REPORT INFORMATION
  Report Type: 
  Country: None (occurrence: None)
  Receive Date: 20111216
  Receipt Date: 20111205
  Transmission Date: 20120403
  Serious: Yes (Other)
  Sender: FDA-Public Use
  Company Number: FR-ROCHE-1021494

PATIENT
  Sex: Female

DRUGS (5)
  1. VALACYCLOVIR HYDROCHLORIDE [Concomitant]
     Route: 002
     Dates: start: 20080603
  2. FLUDARABINE PHOSPHATE [Suspect]
     Indication: CHRONIC LYMPHOCYTIC LEUKAEMIA
     Route: 002
     Dates: start: 20080603, end: 20080828
  3. CYCLOPHOSPHAMIDE [Suspect]
     Indication: CHRONIC LYMPHOCYTIC LEUKAEMIA
     Route: 002
     Dates: start: 20080603, end: 20080828
  4. BACTRIM [Concomitant]
     Route: 002
     Dates: start: 20080603
  5. MABTHERA [Suspect]
     Indication: CHRONIC LYMPHOCYTIC LEUKAEMIA
     Route: 042
     Dates: start: 20080603, end: 20080826

REACTIONS (2)
  - BOWEN'S DISEASE [None]
  - HAIR FOLLICLE TUMOUR BENIGN [None]
